FAERS Safety Report 6228662-7 (Version None)
Quarter: 2009Q2

REPORT INFORMATION
  Report Type: 
  Country: None (occurrence: None)
  Receive Date: 20090614
  Receipt Date: 20090605
  Transmission Date: 20091009
  Serious: Yes (Death, Hospitalization)
  Sender: FDA-Public Use
  Company Number: PHHY2009JP13599

PATIENT
  Sex: Male
  Weight: 40 kg

DRUGS (4)
  1. NEORAL [Suspect]
     Indication: APLASIA PURE RED CELL
     Dosage: 50 MG DAILY
     Route: 048
     Dates: start: 20070727, end: 20070816
  2. NEORAL [Suspect]
     Dosage: 100 MG DAILY
     Route: 048
     Dates: start: 20070817, end: 20070913
  3. NEORAL [Suspect]
     Dosage: 150 MG DAILY
     Route: 048
     Dates: start: 20070914, end: 20071228
  4. EPOGIN [Concomitant]
     Indication: NEPHROGENIC ANAEMIA
     Dosage: 6000 UNITS PER WEEK
     Route: 058
     Dates: start: 20050501, end: 20070701

REACTIONS (17)
  - ABDOMINAL PAIN [None]
  - AORTIC ANEURYSM [None]
  - AORTIC ANEURYSM RUPTURE [None]
  - BLOOD PRESSURE DECREASED [None]
  - CANDIDA PNEUMONIA [None]
  - DECREASED APPETITE [None]
  - DEPRESSED LEVEL OF CONSCIOUSNESS [None]
  - DIZZINESS [None]
  - KLEBSIELLA INFECTION [None]
  - MALAISE [None]
  - PALPITATIONS [None]
  - PLEURAL EFFUSION [None]
  - PROTEINURIA [None]
  - PYREXIA [None]
  - STAPHYLOCOCCAL INFECTION [None]
  - SYSTEMIC MYCOSIS [None]
  - URINARY TRACT INFECTION [None]
